FAERS Safety Report 9686739 (Version 1)
Quarter: 2013Q4

REPORT INFORMATION
  Report Type: Spontaneous
  Country: BR (occurrence: BR)
  Receive Date: 20131113
  Receipt Date: 20131113
  Transmission Date: 20140711
  Serious: Yes (Other)
  Sender: FDA-Public Use
  Company Number: BR-PFIZER INC-2013321979

PATIENT
  Age: 47 Year
  Sex: Female
  Weight: 70 kg

DRUGS (3)
  1. LYRICA [Suspect]
     Indication: FIBROMYALGIA
     Dosage: 1 ^TABLET^ OF 75 MG, DAILY
     Route: 048
     Dates: start: 201205
  2. ALPRAZOLAM [Concomitant]
     Indication: INSOMNIA
  3. MUSCULARE [Concomitant]
     Indication: FIBROMYALGIA
     Dosage: UNK
     Dates: start: 201205

REACTIONS (3)
  - Diabetes mellitus [Recovering/Resolving]
  - Hypertension [Recovering/Resolving]
  - Weight increased [Unknown]
